FAERS Safety Report 20229167 (Version 1)
Quarter: 2021Q4

REPORT INFORMATION
  Report Type: Spontaneous
  Country: FR (occurrence: FR)
  Receive Date: 20211225
  Receipt Date: 20211225
  Transmission Date: 20220303
  Serious: No
  Sender: FDA-Public Use
  Company Number: None

PATIENT
  Age: 88 Year
  Sex: Female

DRUGS (4)
  1. MYCOPHENOLATE MOFETIL [Suspect]
     Active Substance: MYCOPHENOLATE MOFETIL
     Indication: Pemphigoid
     Dosage: 2 GRAM, QD
     Route: 065
  2. MYCOPHENOLATE MOFETIL [Suspect]
     Active Substance: MYCOPHENOLATE MOFETIL
     Dosage: 2.5 GRAM
     Route: 065
  3. OMALIZUMAB [Concomitant]
     Active Substance: OMALIZUMAB
     Indication: Pemphigoid
     Dosage: 600 MILLIGRAM
     Route: 065
  4. PREDNISONE [Concomitant]
     Active Substance: PREDNISONE
     Indication: Pemphigoid
     Dosage: 1 MILLIGRAM/KILOGRAM, QD
     Route: 048

REACTIONS (1)
  - Pruritus [Unknown]
